FAERS Safety Report 23237699 (Version 1)
Quarter: 2023Q4

REPORT INFORMATION
  Report Type: Report from Study
  Country: US (occurrence: US)
  Receive Date: 20231128
  Receipt Date: 20231128
  Transmission Date: 20240110
  Serious: Yes (Hospitalization, Other)
  Sender: FDA-Public Use
  Company Number: US-ABBVIE-5510772

PATIENT
  Sex: Male

DRUGS (1)
  1. VENCLEXTA [Suspect]
     Active Substance: VENETOCLAX
     Indication: Myelodysplastic syndrome
     Dosage: LAST ADMIN DATE- 2023
     Route: 048
     Dates: start: 20230625

REACTIONS (1)
  - Chemotherapy [Unknown]

NARRATIVE: CASE EVENT DATE: 20230101
